FAERS Safety Report 7879268-5 (Version None)
Quarter: 2011Q4

REPORT INFORMATION
  Report Type: 
  Country: None (occurrence: None)
  Receive Date: 20111101
  Receipt Date: 20111021
  Transmission Date: 20120403
  Serious: Yes (Hospitalization)
  Sender: FDA-Public Use
  Company Number: US-BAYER-2011-052680

PATIENT
  Age: 20 Year
  Sex: Female
  Weight: 59 kg

DRUGS (5)
  1. BUPROPION HCL [Concomitant]
     Dosage: 100 MG, UNK
     Route: 048
     Dates: start: 20050516
  2. PRILOSEC [Concomitant]
     Dosage: 20 MG, UNK
     Route: 048
     Dates: start: 20050516
  3. SUCRALFAT [Concomitant]
     Dosage: 1 MG, UNK
     Route: 048
     Dates: start: 20050506
  4. WELLBUTRIN [Concomitant]
  5. YASMIN [Suspect]
     Dosage: UNK
     Dates: start: 20040101, end: 20060101

REACTIONS (3)
  - GALLBLADDER DISORDER [None]
  - CHOLECYSTITIS CHRONIC [None]
  - PAIN [None]
